FAERS Safety Report 5460762-1 (Version None)
Quarter: 2007Q3

REPORT INFORMATION
  Report Type: 
  Country: None (occurrence: None)
  Receive Date: 20070918
  Receipt Date: 20070830
  Transmission Date: 20080115
  Serious: Yes (Hospitalization)
  Sender: FDA-Public Use
  Company Number: 6037808

PATIENT
  Age: 55 Year
  Sex: Female

DRUGS (3)
  1. CITALOPRAM HYDROBROMIDE [Suspect]
     Indication: DEPRESSION
     Dosage: 20 MG (20 MG, 1 IN 1 D) ORAL
     Route: 048
     Dates: start: 20050701, end: 20051201
  2. IMIPRAMINE [Suspect]
     Indication: ANXIETY DISORDER
     Dosage: 25 MG (25 MG,1 IN 1 D)
     Dates: start: 20060509, end: 20060707
  3. LEVOTHYROXINE SODIUM [Concomitant]

REACTIONS (5)
  - ANGLE CLOSURE GLAUCOMA [None]
  - INTRAOCULAR PRESSURE INCREASED [None]
  - IRIDOTOMY [None]
  - PUPILLARY LIGHT REFLEX TESTS ABNORMAL [None]
  - VISION BLURRED [None]
